FAERS Safety Report 4544421-5 (Version None)
Quarter: 2005Q1

REPORT INFORMATION
  Report Type: 
  Country: None (occurrence: None)
  Receive Date: 20050105
  Receipt Date: 20041224
  Transmission Date: 20050727
  Serious: Yes (Hospitalization)
  Sender: FDA-Public Use
  Company Number: FR-JNJFOC-20040301753

PATIENT
  Age: 57 Year
  Sex: Male
  Weight: 73 kg

DRUGS (13)
  1. REMICADE [Suspect]
     Indication: ANKYLOSING SPONDYLITIS
     Route: 042
  2. IMMUNOSUPPRESSANT [Concomitant]
  3. VOLTAREN [Concomitant]
     Indication: PAIN
     Route: 049
  4. PROPOFOL [Concomitant]
     Route: 049
  5. PROPOFOL [Concomitant]
     Route: 049
  6. PROPOFOL [Concomitant]
     Route: 049
  7. PROPOFOL [Concomitant]
     Route: 049
  8. PROPOFOL [Concomitant]
     Indication: PAIN
     Route: 049
  9. ANTALVIC [Concomitant]
     Indication: PAIN
     Route: 049
  10. THIOCOLCHICOZIDE [Concomitant]
     Route: 049
  11. TETRAZEPAM [Concomitant]
     Route: 049
  12. OMEPRAZOLE [Concomitant]
     Route: 049
  13. MEDIATOR [Concomitant]
     Route: 049

REACTIONS (9)
  - ABASIA [None]
  - AMYOTROPHIC LATERAL SCLEROSIS [None]
  - ANKYLOSING SPONDYLITIS [None]
  - EMPHYSEMA [None]
  - HYPOKINESIA [None]
  - MUSCULAR WEAKNESS [None]
  - NIGHT CRAMPS [None]
  - POLYNEUROPATHY [None]
  - VITAMIN B1 DEFICIENCY [None]
